FAERS Safety Report 18040357 (Version 2)
Quarter: 2020Q3

REPORT INFORMATION
  Report Type: Spontaneous
  Country: US (occurrence: US)
  Receive Date: 20200718
  Receipt Date: 20200806
  Transmission Date: 20201103
  Serious: No
  Sender: FDA-Public Use
  Company Number: US-009507513-2007USA003240

PATIENT
  Age: 18 Year
  Sex: Female
  Weight: 65.76 kg

DRUGS (1)
  1. NEXPLANON [Suspect]
     Active Substance: ETONOGESTREL
     Dosage: 1 ROD EVERY 3 YEAR, LEFT UPPER ARM
     Route: 059
     Dates: start: 20200629

REACTIONS (3)
  - Implant site injury [Unknown]
  - Complication associated with device [Not Recovered/Not Resolved]
  - Implant site haemorrhage [Unknown]

NARRATIVE: CASE EVENT DATE: 20200705
